FAERS Safety Report 7984059-0 (Version None)
Quarter: 2011Q4

REPORT INFORMATION
  Report Type: 
  Country: None (occurrence: None)
  Receive Date: 20111216
  Receipt Date: 20111209
  Transmission Date: 20120403
  Serious: Yes (Hospitalization)
  Sender: FDA-Public Use
  Company Number: GB-PFIZER INC-2011198593

PATIENT
  Age: 86 Year
  Sex: Female

DRUGS (10)
  1. RAMIPRIL [Suspect]
     Indication: HYPERTENSION
     Dosage: 10 MG, 1X/DAY
     Route: 048
     Dates: end: 20110802
  2. CITALOPRAM [Concomitant]
     Indication: DEPRESSION
     Dosage: 10 MG, 1X/DAY
     Route: 048
  3. ISOSORBIDE MONONITRATE [Concomitant]
     Indication: ANGINA PECTORIS
     Dosage: 25 MG, 1X/DAY
     Route: 048
  4. ISOSORBIDE MONONITRATE [Concomitant]
     Dosage: 20 MG, 1X/DAY
     Route: 048
  5. METOPROLOL [Suspect]
     Indication: HYPERTENSION
     Dosage: 25 MG, 1X/DAY
     Route: 048
     Dates: end: 20110802
  6. FUROSEMIDE [Concomitant]
     Indication: DIURETIC THERAPY
     Dosage: 120 MG, 1X/DAY
     Route: 048
  7. GALANTAMINE [Concomitant]
     Indication: DEMENTIA
     Dosage: 8 MG, 1X/DAY
     Route: 048
  8. OMEPRAZOLE [Concomitant]
     Dosage: 20 MG, 1X/DAY
     Route: 048
  9. RAMIPRIL [Suspect]
     Indication: MYOCARDIAL ISCHAEMIA
  10. METOPROLOL [Suspect]
     Indication: MYOCARDIAL ISCHAEMIA

REACTIONS (1)
  - LARYNGEAL OEDEMA [None]
